FAERS Safety Report 7273277-5 (Version None)
Quarter: 2011Q1

REPORT INFORMATION
  Report Type: 
  Country: None (occurrence: None)
  Receive Date: 20110203
  Receipt Date: 20101229
  Transmission Date: 20110831
  Serious: No
  Sender: FDA-Public Use
  Company Number: US-ABBOTT-11P-163-0694685-00

PATIENT
  Sex: Female
  Weight: 60.836 kg

DRUGS (6)
  1. SYNTHROID [Suspect]
     Route: 048
  2. VALIUM [Concomitant]
     Indication: PAIN
     Dosage: 2-3 TABS DAILY
     Route: 048
  3. DEMEROL [Concomitant]
     Indication: PAIN
  4. SYNTHROID [Suspect]
     Indication: HYPOTHYROIDISM
     Route: 048
  5. SYNTHROID [Suspect]
     Route: 048
     Dates: start: 20100901
  6. PERCOCET [Concomitant]
     Indication: PAIN
     Dosage: 2-3 TABS DAILY
     Route: 048

REACTIONS (3)
  - WEIGHT INCREASED [None]
  - MYALGIA [None]
  - MUSCLE SPASMS [None]
